FAERS Safety Report 5183182-6 (Version None)
Quarter: 2006Q4

REPORT INFORMATION
  Report Type: 
  Country: None (occurrence: None)
  Receive Date: 20061220
  Receipt Date: 20051229
  Transmission Date: 20070319
  Serious: No
  Sender: FDA-Public Use
  Company Number: US-GLAXOSMITHKLINE-A0587216A

PATIENT
  Age: 53 Year
  Sex: Female

DRUGS (4)
  1. EQUATE NTS 21MG [Suspect]
     Indication: SMOKING CESSATION THERAPY
  2. NICODERM CQ [Suspect]
     Indication: SMOKING CESSATION THERAPY
  3. NICORETTE [Suspect]
     Indication: SMOKING CESSATION THERAPY
  4. COMMIT [Suspect]
     Indication: SMOKING CESSATION THERAPY

REACTIONS (10)
  - APPLICATION SITE ERYTHEMA [None]
  - APPLICATION SITE IRRITATION [None]
  - APPLICATION SITE PRURITUS [None]
  - APPLICATION SITE SCAR [None]
  - APPLICATION SITE VESICLES [None]
  - LACRIMATION INCREASED [None]
  - PAIN IN JAW [None]
  - PHARYNGOLARYNGEAL PAIN [None]
  - RHINORRHOEA [None]
  - SENSITIVITY OF TEETH [None]
